FAERS Safety Report 4328761-0 (Version None)
Quarter: 2004Q1

REPORT INFORMATION
  Report Type: 
  Country: None (occurrence: None)
  Receive Date: 20040329
  Receipt Date: 20040224
  Transmission Date: 20041129
  Serious: No
  Sender: FDA-Public Use
  Company Number: 04P-163-0246787-00

PATIENT
  Age: 54 Year
  Sex: Female
  Weight: 102.0593 kg

DRUGS (12)
  1. HUMIRA [Suspect]
     Indication: RHEUMATOID ARTHRITIS
     Dosage: 40 MG, 1 IN 2 WK, SUBCUTANEOUS
     Route: 058
     Dates: start: 20031210
  2. TRAMADOL HCL [Concomitant]
  3. OXAROZINE [Concomitant]
  4. TIZANIDINE HCL [Concomitant]
  5. METAXALONE [Concomitant]
  6. GABAPENTIN [Concomitant]
  7. ZOLPIDEM TARTRATE [Concomitant]
  8. ZOCOR [Concomitant]
  9. CALCIUM CARBONATE [Concomitant]
  10. HYDROCHLOROTHIAZIDE [Concomitant]
  11. ALLEGRA-D [Concomitant]
  12. METHOCARBAMOL [Concomitant]

REACTIONS (1)
  - INJECTION SITE BURNING [None]
